FAERS Safety Report 12463555 (Version 1)
Quarter: 2016Q2

REPORT INFORMATION
  Report Type: Spontaneous
  Country: US (occurrence: US)
  Receive Date: 20160614
  Receipt Date: 20160614
  Transmission Date: 20160815
  Serious: Yes (Hospitalization, Other)
  Sender: FDA-Public Use
  Company Number: US-ASTELLAS-2016US022300

PATIENT
  Sex: Male

DRUGS (1)
  1. XTANDI [Suspect]
     Active Substance: ENZALUTAMIDE
     Indication: PROSTATE CANCER
     Dosage: UNK UNK, UNKNOWN FREQ.
     Route: 065

REACTIONS (7)
  - Staphylococcal infection [Unknown]
  - Hospitalisation [Unknown]
  - Seizure [Unknown]
  - Blood pressure abnormal [Unknown]
  - Adverse event [Unknown]
  - Blood sodium abnormal [Unknown]
  - Decreased appetite [Unknown]
